FAERS Safety Report 19241455 (Version 1)
Quarter: 2021Q2

REPORT INFORMATION
  Report Type: Spontaneous
  Country: US (occurrence: US)
  Receive Date: 20210510
  Receipt Date: 20210510
  Transmission Date: 20210717
  Serious: No
  Sender: FDA-Public Use
  Company Number: None

PATIENT
  Age: 32 Year
  Sex: Female
  Weight: 56.7 kg

DRUGS (4)
  1. OLLY ENERGY VITAMINS [Concomitant]
  2. LEXAPRO [Concomitant]
     Active Substance: ESCITALOPRAM OXALATE
  3. NEXPLANON [Suspect]
     Active Substance: ETONOGESTREL
     Dates: start: 20201001
  4. OLLY BEAUTY VITAMINS [Concomitant]

REACTIONS (1)
  - Heavy menstrual bleeding [None]
